FAERS Safety Report 20810452 (Version 2)
Quarter: 2022Q2

REPORT INFORMATION
  Report Type: Report from Study
  Country: US (occurrence: US)
  Receive Date: 20220510
  Receipt Date: 20220616
  Transmission Date: 20220721
  Serious: Yes (Other)
  Sender: FDA-Public Use
  Company Number: US-BAUSCH-BL-2022-011364

PATIENT
  Age: 31 Year
  Sex: Male

DRUGS (1)
  1. XIFAXAN [Suspect]
     Active Substance: RIFAXIMIN
     Indication: Liver disorder
     Route: 048

REACTIONS (3)
  - Gastrointestinal haemorrhage [Unknown]
  - Vomiting [Recovering/Resolving]
  - Nausea [Recovering/Resolving]
